FAERS Safety Report 10218626 (Version 1)
Quarter: 2014Q2

REPORT INFORMATION
  Report Type: Spontaneous
  Country: US (occurrence: None)
  Receive Date: 20140603
  Receipt Date: 20140603
  Transmission Date: 20141212
  Serious: Yes (Death, Hospitalization)
  Sender: FDA-Public Use
  Company Number: 2014P1004437

PATIENT
  Age: 57 Year
  Sex: Male

DRUGS (2)
  1. HYDROCHLOROTHIAZIDE [Suspect]
     Indication: HYPERTENSION
  2. MOEXIPRIL [Suspect]

REACTIONS (17)
  - Abdominal pain [None]
  - Nausea [None]
  - Vomiting [None]
  - Septic shock [None]
  - Neutropenia [None]
  - Necrotising colitis [None]
  - Multi-organ failure [None]
  - Blood creatinine increased [None]
  - Pulse absent [None]
  - Body temperature increased [None]
  - Hypotension [None]
  - Hyperhidrosis [None]
  - Abdominal rigidity [None]
  - Abdominal distension [None]
  - Blood lactic acid increased [None]
  - Areflexia [None]
  - Unresponsive to stimuli [None]
